FAERS Safety Report 8359818 (Version 3)
Quarter: 2013Q2

REPORT INFORMATION
  Report Type: Spontaneous
  Country: US (occurrence: None)
  Receive Date: 20111220
  Receipt Date: 20121227
  Transmission Date: 20140414
  Serious: Yes (Hospitalization)
  Sender: FDA-Public Use
  Company Number: PHHY2011US69757

PATIENT
  Age: 57 Year
  Sex: Male

DRUGS (5)
  1. MYFORTIC [Suspect]
     Indication: KIDNEY TRANSPLANT REJECTION
     Dosage: 1080 MG,  QD, ORAL
     Route: 048
     Dates: start: 20100701
  2. TAMSULOSIN HYDROCHLORIDE [Concomitant]
  3. TACROLIMUS (TACROLIMUS) [Concomitant]
  4. LISINOPRIL (LISINOPRIL) [Concomitant]
  5. ENALAPRIL (ENALAPRIL) [Concomitant]

REACTIONS (1)
  - HERPES ZOSTER [None]
